FAERS Safety Report 15974642 (Version 1)
Quarter: 2019Q1

REPORT INFORMATION
  Report Type: Spontaneous
  Country: IN (occurrence: IN)
  Receive Date: 20190218
  Receipt Date: 20190218
  Transmission Date: 20190418
  Serious: Yes (Hospitalization, Disabling, Other)
  Sender: FDA-Public Use
  Company Number: IN-IMPAX LABORATORIES, LLC-2019-IPXL-00497

PATIENT
  Sex: Female

DRUGS (3)
  1. ATROPINE. [Suspect]
     Active Substance: ATROPINE
     Indication: ANAESTHESIA
     Dosage: 0.4 MILLIGRAM, SINGLE
     Route: 013
     Dates: start: 20180101, end: 20180101
  2. PENTAZOCINE [Suspect]
     Active Substance: PENTAZOCINE
     Indication: ANAESTHESIA
     Dosage: 30 MILLIGRAM, SINGLE
     Route: 013
     Dates: start: 20180101, end: 20180101
  3. PROMETHAZINE HYDROCHLORIDE. [Suspect]
     Active Substance: PROMETHAZINE HYDROCHLORIDE
     Indication: ANAESTHESIA
     Dosage: 25 MILLIGRAM, SINGLE
     Route: 013
     Dates: start: 20180101, end: 20180101

REACTIONS (4)
  - Gangrene [Recovered/Resolved with Sequelae]
  - Pulse absent [Recovered/Resolved with Sequelae]
  - Incorrect route of product administration [Recovered/Resolved with Sequelae]
  - Extremity contracture [Recovered/Resolved with Sequelae]
